FAERS Safety Report 9582074 (Version 1)
Quarter: 2013Q4

REPORT INFORMATION
  Report Type: Spontaneous
  Country: US (occurrence: US)
  Receive Date: 20131002
  Receipt Date: 20131002
  Transmission Date: 20140711
  Serious: No
  Sender: FDA-Public Use
  Company Number: US-AMGEN-USASP2013043317

PATIENT
  Age: 57 Year
  Sex: Female
  Weight: 63.49 kg

DRUGS (7)
  1. ENBREL [Suspect]
     Indication: PRODUCT USED FOR UNKNOWN INDICATION
     Dosage: 50 MG, QWK
     Route: 058
  2. METHOTREXATE [Concomitant]
     Dosage: 50 MG, UNK
  3. PROBIOTIC                          /06395501/ [Concomitant]
     Dosage: UNK
  4. FOLIC ACID [Concomitant]
     Dosage: UNK
  5. VITAMIN D                          /00107901/ [Concomitant]
     Dosage: 400 UNIT, UNK
  6. FISH OIL [Concomitant]
     Dosage: UNK
  7. PREDNISONE [Concomitant]
     Dosage: 1 MG, UNK

REACTIONS (6)
  - Rheumatoid arthritis [Unknown]
  - Fatigue [Unknown]
  - Nodule [Unknown]
  - Injection site reaction [Unknown]
  - Injection site erythema [Unknown]
  - Injection site urticaria [Unknown]
